FAERS Safety Report 7363688-1 (Version None)
Quarter: 2011Q1

REPORT INFORMATION
  Report Type: 
  Country: None (occurrence: None)
  Receive Date: 20110321
  Receipt Date: 20101123
  Transmission Date: 20110831
  Serious: No
  Sender: FDA-Public Use
  Company Number: A0894691A

PATIENT
  Age: 84 Year
  Sex: Male

DRUGS (7)
  1. PRILOSEC [Concomitant]
  2. ZYRTEC [Concomitant]
  3. ATENOLOL [Concomitant]
  4. PROMACTA [Suspect]
     Indication: IDIOPATHIC THROMBOCYTOPENIC PURPURA
     Dosage: 50MG PER DAY
     Route: 048
     Dates: start: 20101102, end: 20101123
  5. PREDNISONE [Concomitant]
  6. TERAZOSIN HCL [Concomitant]
  7. BRIMONIDINE [Concomitant]

REACTIONS (1)
  - RASH ERYTHEMATOUS [None]
